FAERS Safety Report 6161253-5 (Version None)
Quarter: 2009Q2

REPORT INFORMATION
  Report Type: 
  Country: None (occurrence: None)
  Receive Date: 20090417
  Receipt Date: 20090116
  Transmission Date: 20091009
  Serious: Yes (Death)
  Sender: FDA-Public Use
  Company Number: AMAN20090003

PATIENT
  Age: 12 Year
  Sex: Female

DRUGS (6)
  1. AMANTADINE HCL [Suspect]
     Indication: NASOPHARYNGITIS
     Dates: end: 20070101
  2. QUETIAPINE FUMARATE [Suspect]
     Indication: NASOPHARYNGITIS
     Dates: end: 20070101
  3. DOXYLAMINE SUCCINATE [Suspect]
     Indication: NASOPHARYNGITIS
     Dates: end: 20070101
  4. PAROXETINE HCL [Suspect]
     Indication: NASOPHARYNGITIS
     Dates: end: 20070101
  5. IBUPROFEN [Concomitant]
  6. METHADONE [Suspect]
     Dates: end: 20070101

REACTIONS (5)
  - ASPIRATION [None]
  - BRAIN OEDEMA [None]
  - DRUG TOXICITY [None]
  - SELF-MEDICATION [None]
  - UNRESPONSIVE TO STIMULI [None]
